FAERS Safety Report 18532639 (Version 2)
Quarter: 2021Q3

REPORT INFORMATION
  Report Type: Spontaneous
  Country: BR (occurrence: BR)
  Receive Date: 20201123
  Receipt Date: 20210920
  Transmission Date: 20211014
  Serious: Yes (Other)
  Sender: FDA-Public Use
  Company Number: BR-AMGEN-BRASP2019135457

PATIENT
  Age: 48 Year
  Sex: Female

DRUGS (1)
  1. ENBREL [Suspect]
     Active Substance: ETANERCEPT
     Indication: PSORIATIC ARTHROPATHY
     Dosage: UNK
     Route: 065

REACTIONS (20)
  - Dyspnoea [Unknown]
  - Irritability [Unknown]
  - Pain [Not Recovered/Not Resolved]
  - Injection site irritation [Unknown]
  - Weight decreased [Unknown]
  - Injection site mass [Unknown]
  - Injection site swelling [Unknown]
  - Injection site pain [Unknown]
  - Product dose omission issue [Unknown]
  - Injection site injury [Unknown]
  - Injection site hypersensitivity [Unknown]
  - Product dispensing error [Unknown]
  - Injection site erythema [Unknown]
  - Fear of injection [Unknown]
  - Dermatitis [Unknown]
  - Pyrexia [Unknown]
  - Injection site pruritus [Unknown]
  - Injection site warmth [Unknown]
  - Psoriatic arthropathy [Unknown]
  - Somnolence [Unknown]
